FAERS Safety Report 8771117 (Version 2)
Quarter: 2012Q4

REPORT INFORMATION
  Report Type: 
  Country: US (occurrence: US)
  Receive Date: 20120906
  Receipt Date: 20120911
  Transmission Date: 20130627
  Serious: Yes (Hospitalization)
  Sender: FDA-Public Use
  Company Number: US-ALEXION-A201201640

PATIENT
  Age: 39 Year
  Sex: Female
  Weight: 49.89 kg

DRUGS (12)
  1. SOLIRIS 300MG [Suspect]
     Indication: PAROXYSMAL NOCTURNAL HAEMOGLOBINURIA
     Dosage: 900 mg, q2w
     Route: 042
  2. SOLIRIS 300MG [Suspect]
     Dosage: 600 mg, qw
     Route: 042
     Dates: start: 20110721
  3. DIALYVITE [Concomitant]
     Dosage: UNK
  4. RENAGEL [Concomitant]
     Dosage: UNK
  5. PERCOCET [Concomitant]
     Dosage: UNK
  6. AMLODIPINE [Concomitant]
     Dosage: UNK
  7. AUGMENTIN [Concomitant]
     Dosage: UNK
  8. LIPITOR [Concomitant]
     Dosage: UNK
  9. COLACE [Concomitant]
     Dosage: UNK
  10. LANTUS [Concomitant]
     Dosage: UNK
  11. METOPROLOL [Concomitant]
     Dosage: UNK
  12. NOVOLOG [Concomitant]
     Dosage: UNK

REACTIONS (2)
  - Klebsiella bacteraemia [Recovering/Resolving]
  - Empyema [Recovering/Resolving]
